FAERS Safety Report 8022281-8 (Version None)
Quarter: 2012Q1

REPORT INFORMATION
  Report Type: 
  Country: None (occurrence: None)
  Receive Date: 20120104
  Receipt Date: 20120102
  Transmission Date: 20120608
  Serious: Yes (Death, Hospitalization)
  Sender: FDA-Public Use
  Company Number: PHHY2011BR112946

PATIENT
  Sex: Female

DRUGS (9)
  1. FORMOTEROL FUMARATE [Suspect]
     Indication: ASTHMA
  2. BAMIFIX [Concomitant]
  3. BEROTEC [Concomitant]
  4. SOMALGIN [Concomitant]
  5. BROMOPRIDE [Concomitant]
  6. LOSACOR [Concomitant]
  7. FORMOTEROL FUMARATE [Suspect]
     Indication: BRONCHITIS
  8. ATROVENT [Concomitant]
  9. HYDROCHLOROTHIAZIDE [Concomitant]

REACTIONS (2)
  - LUNG INFECTION [None]
  - DEATH [None]
